FAERS Safety Report 20316001 (Version 1)
Quarter: 2022Q1

REPORT INFORMATION
  Report Type: Spontaneous
  Country: EG (occurrence: EG)
  Receive Date: 20220110
  Receipt Date: 20220110
  Transmission Date: 20220423
  Serious: Yes (Life-Threatening, Other)
  Sender: FDA-Public Use
  Company Number: EG-NOVOPROD-880308

PATIENT
  Age: 66 Year
  Sex: Female
  Weight: 99 kg

DRUGS (7)
  1. INSULIN ASPART [Suspect]
     Active Substance: INSULIN ASPART
     Indication: Type 2 diabetes mellitus
     Dosage: UNK
     Route: 065
     Dates: start: 2015, end: 2019
  2. AMOSAR FORTE [Concomitant]
     Indication: Hypertension
     Dosage: 1 QD (/BREAKFAST)
     Route: 048
     Dates: start: 2017
  3. CONVENTIN [Concomitant]
     Indication: Pain
     Dosage: 1 QD (NIGHT)
     Route: 048
     Dates: start: 2018
  4. B-COM [Concomitant]
     Indication: Neuropathy peripheral
     Dosage: 1 FOR EVERY 3 DAYS
     Route: 030
     Dates: start: 201811
  5. OMEPRAZOLE [Concomitant]
     Active Substance: OMEPRAZOLE
     Indication: Gastrointestinal disorder prophylaxis
     Dosage: 2 QD
     Route: 065
     Dates: start: 2018
  6. ACETAMINOPHEN [Concomitant]
     Active Substance: ACETAMINOPHEN
     Indication: Analgesic therapy
     Dosage: 1 QD (MEAL)
     Route: 065
     Dates: start: 2018
  7. CALDIN C [Concomitant]
     Indication: Mineral supplementation
     Dosage: 1 QD
     Route: 065
     Dates: start: 201811

REACTIONS (1)
  - Invasive ductal breast carcinoma [Not Recovered/Not Resolved]

NARRATIVE: CASE EVENT DATE: 20180329
